FAERS Safety Report 10068809 (Version 3)
Quarter: 2014Q2

REPORT INFORMATION
  Report Type: Spontaneous
  Country: US (occurrence: US)
  Receive Date: 20140409
  Receipt Date: 20140421
  Transmission Date: 20141212
  Serious: Yes (Other)
  Sender: FDA-Public Use
  Company Number: PHHY2014US030802

PATIENT
  Age: 58 Year
  Sex: Male

DRUGS (4)
  1. LIORESAL INTRATECAL [Suspect]
     Indication: MUSCLE SPASTICITY
     Dosage: 500 UG/ DAY
     Route: 037
     Dates: start: 2009
  2. ALBUTEROL SULFATE TABLETS USP [Suspect]
     Dosage: UNK UKN, UNK
  3. NEURONTIN [Suspect]
     Dosage: UNK UKN, UNK
  4. BACLOFEN [Suspect]
     Dosage: UNK UKN, UNK
     Route: 048

REACTIONS (4)
  - Ingrowing nail [Unknown]
  - Urinary tract infection [Unknown]
  - Muscle spasticity [Unknown]
  - Muscle spasms [Not Recovered/Not Resolved]
